FAERS Safety Report 10283876 (Version 1)
Quarter: 2014Q3

REPORT INFORMATION
  Report Type: Spontaneous
  Country: US (occurrence: US)
  Receive Date: 20140708
  Receipt Date: 20140708
  Transmission Date: 20150326
  Serious: Yes (Other)
  Sender: FDA-Public Use
  Company Number: US-PAR PHARMACEUTICAL, INC-2014SCPR009221

PATIENT

DRUGS (15)
  1. COZAAR [Concomitant]
     Active Substance: LOSARTAN POTASSIUM
     Indication: BLOOD PRESSURE
     Dosage: 1 DF, OD
     Route: 048
     Dates: start: 201402
  2. PREDNISONE. [Suspect]
     Active Substance: PREDNISONE
     Indication: BRONCHITIS
     Dosage: 2 DF, / DAY
     Route: 065
     Dates: start: 2014
  3. TRAMADOL [Suspect]
     Active Substance: TRAMADOL
     Indication: PAIN
     Dosage: 50 MG, / DAY
     Route: 048
     Dates: start: 20120424
  4. REMICADE [Suspect]
     Active Substance: INFLIXIMAB
     Dosage: UNK UNK, UNKNOWN
     Dates: start: 2014
  5. LEUCOVORIN CALCIUM. [Concomitant]
     Active Substance: LEUCOVORIN CALCIUM
     Indication: NAUSEA
     Dosage: 10 MG, DAILY
     Route: 065
     Dates: start: 20130413
  6. CORTISONE [Concomitant]
     Active Substance: CORTISONE\HYDROCORTISONE
     Indication: PREMEDICATION
     Dosage: UNK, UNKNOWN
     Route: 065
  7. REMICADE [Suspect]
     Active Substance: INFLIXIMAB
     Dosage: UNK UNK, UNKNOWN
     Dates: start: 201405
  8. BENADRYL [Suspect]
     Active Substance: DIPHENHYDRAMINE HYDROCHLORIDE
     Indication: PREMEDICATION
     Dosage: UNK, UNKNOWN
     Dates: start: 201405
  9. PREDNISONE. [Suspect]
     Active Substance: PREDNISONE
     Indication: CELLULITIS
     Dosage: UNK, UNKNOWN
     Route: 065
     Dates: start: 2014, end: 2014
  10. LISINOPRIL. [Concomitant]
     Active Substance: LISINOPRIL
     Indication: BLOOD PRESSURE
     Dosage: 1 DF, OD
     Route: 048
     Dates: start: 201309
  11. REMICADE [Suspect]
     Active Substance: INFLIXIMAB
     Indication: ARTHRITIS
     Dosage: UNK UNK, UNKNOWN
     Dates: start: 20131227
  12. PREDNISONE. [Suspect]
     Active Substance: PREDNISONE
     Indication: RESPIRATORY DISORDER
  13. METHOTREXATE [Concomitant]
     Active Substance: METHOTREXATE
     Indication: ARTHRITIS
     Dosage: 3 DF, WEEKLY
     Route: 048
     Dates: start: 2013
  14. FOLIC ACID. [Concomitant]
     Active Substance: FOLIC ACID
     Indication: VITAMIN SUPPLEMENTATION
     Dosage: 1 DF, OD
     Route: 048
     Dates: start: 20120404
  15. HYDROCHLOORTHIAZIDE [Concomitant]
     Active Substance: HYDROCHLOROTHIAZIDE
     Indication: BLOOD PRESSURE
     Dosage: 1 DF, OD
     Route: 048
     Dates: start: 201309

REACTIONS (10)
  - Flushing [Recovered/Resolved]
  - Cellulitis [Recovered/Resolved]
  - Respiratory depression [Recovered/Resolved]
  - Dizziness [Unknown]
  - Somnolence [Recovered/Resolved]
  - Drug intolerance [Unknown]
  - Ocular hyperaemia [Recovered/Resolved]
  - Weight increased [Not Recovered/Not Resolved]
  - Bronchitis [Recovered/Resolved]
  - Infusion related reaction [Recovered/Resolved]

NARRATIVE: CASE EVENT DATE: 2014
